FAERS Safety Report 9096041 (Version 1)
Quarter: 2013Q1

REPORT INFORMATION
  Report Type: Spontaneous
  Country: JP (occurrence: JP)
  Receive Date: 20130207
  Receipt Date: 20130207
  Transmission Date: 20140127
  Serious: Yes (Other)
  Sender: FDA-Public Use
  Company Number: JP-ROCHE-1182955

PATIENT
  Age: 2 Year
  Sex: Female

DRUGS (2)
  1. TAMIFLU [Suspect]
     Indication: PRODUCT USED FOR UNKNOWN INDICATION
     Dosage: DOSAGE IS UNCERTAIN FORM SYR
     Route: 048
  2. PERIACTIN [Concomitant]
     Dosage: DOSAGE IS UNCERTAIN
     Route: 048

REACTIONS (1)
  - Loss of consciousness [Unknown]
